FAERS Safety Report 5911248-9 (Version None)
Quarter: 2008Q4

REPORT INFORMATION
  Report Type: 
  Country: None (occurrence: None)
  Receive Date: 20081007
  Receipt Date: 20080926
  Transmission Date: 20090506
  Serious: Yes (Hospitalization)
  Sender: FDA-Public Use
  Company Number: GB-ASTRAZENECA-2008AC02574

PATIENT
  Age: 20 Year
  Sex: Male

DRUGS (5)
  1. OMEPRAZOLE [Suspect]
  2. ANTI-PSEUDOMONAL ANTIBIOTICS [Concomitant]
     Dosage: FREQUENT
     Route: 042
  3. ANTI-PSEUDOMONAL ANTIBIOTICS [Concomitant]
     Route: 042
  4. STEROIDS [Concomitant]
     Indication: LUNG CONSOLIDATION
     Route: 048
  5. AZITHROMYCIN [Concomitant]

REACTIONS (1)
  - PSEUDOMEMBRANOUS COLITIS [None]
